FAERS Safety Report 4717693-1 (Version None)
Quarter: 2005Q3

REPORT INFORMATION
  Report Type: 
  Country: None (occurrence: None)
  Receive Date: 20050715
  Receipt Date: 20050629
  Transmission Date: 20060218
  Serious: Yes (Other)
  Sender: FDA-Public Use
  Company Number: DSA_26330_2005

PATIENT
  Sex: Male

DRUGS (2)
  1. VASOTEC RPD [Suspect]
     Dosage: VAR PO
     Route: 048
  2. VASOTEC RPD [Suspect]
     Dosage: 10 MG Q DAY PO
     Route: 048

REACTIONS (3)
  - BLOOD PRESSURE INADEQUATELY CONTROLLED [None]
  - BLOOD PRESSURE INCREASED [None]
  - INCORRECT DOSE ADMINISTERED [None]
